FAERS Safety Report 7584526-8 (Version None)
Quarter: 2011Q2

REPORT INFORMATION
  Report Type: 
  Country: None (occurrence: None)
  Receive Date: 20110630
  Receipt Date: 20110619
  Transmission Date: 20111010
  Serious: Yes (Other)
  Sender: FDA-Public Use
  Company Number: GB-TEVA-287856ISR

PATIENT
  Age: 1 Month

DRUGS (3)
  1. FLUDARABINE PHOSPHATE [Suspect]
  2. TREOSULFAN [Suspect]
  3. ALEMTUZUMAB [Concomitant]

REACTIONS (2)
  - CONVULSION [None]
  - PERINEAL ULCERATION [None]
